FAERS Safety Report 10495696 (Version 3)
Quarter: 2015Q1

REPORT INFORMATION
  Report Type: Report from Study
  Country: ZW (occurrence: ZW)
  Receive Date: 20141003
  Receipt Date: 20150312
  Transmission Date: 20150720
  Serious: Yes (Other)
  Sender: FDA-Public Use
  Company Number: ZW-BRISTOL-MYERS SQUIBB COMPANY-21391164

PATIENT
  Age: 34 Year
  Sex: Female
  Weight: 66 kg

DRUGS (3)
  1. EFAVIRENZ [Suspect]
     Active Substance: EFAVIRENZ
     Indication: HIV INFECTION
     Dosage: LAST DOSE ADMINISTRATION-31-JUL-2014
     Route: 048
     Dates: start: 20110531
  2. ALUVIA [Suspect]
     Active Substance: LOPINAVIR\RITONAVIR
     Indication: HIV INFECTION
     Dosage: 1DF=800/200MG  DATE OF LAST DOSE: 24DEC2014  RESTART DATE:31-JUL-2014
     Route: 048
     Dates: start: 20081107
  3. COMBIVIR [Suspect]
     Active Substance: LAMIVUDINE\ZIDOVUDINE
     Indication: HIV INFECTION
     Dosage: 1DF=150/300MG    TO 24DEC2008    DATE OF LAST DOSE:01-SEP-2014  31-MAY-2011
     Route: 048
     Dates: start: 20081107

REACTIONS (3)
  - Abortion induced [Recovering/Resolving]
  - Retained products of conception [Unknown]
  - Maternal exposure during pregnancy [Recovered/Resolved]

NARRATIVE: CASE EVENT DATE: 20140902
